FAERS Safety Report 6752023-5 (Version None)
Quarter: 2010Q2

REPORT INFORMATION
  Report Type: 
  Country: None (occurrence: None)
  Receive Date: 20100602
  Receipt Date: 20100526
  Transmission Date: 20101027
  Serious: Yes (Hospitalization)
  Sender: FDA-Public Use
  Company Number: US-MERCK-1005USA04515

PATIENT
  Sex: Female

DRUGS (9)
  1. COZAAR [Suspect]
     Indication: HYPERTENSION
     Route: 048
     Dates: start: 20070101
  2. BUSPIRONE HYDROCHLORIDE [Concomitant]
     Route: 065
  3. CLONIDINE [Concomitant]
     Route: 065
  4. METFORMIN [Concomitant]
     Route: 065
  5. SIMVASTATIN [Concomitant]
     Route: 048
  6. SPIRONOLACTONE [Concomitant]
     Route: 065
  7. METOPROLOL [Concomitant]
     Route: 065
  8. PLAVIX [Concomitant]
     Route: 065
  9. FELODIPINE [Concomitant]
     Route: 065

REACTIONS (3)
  - CARDIAC VALVE DISEASE [None]
  - DIZZINESS [None]
  - HEADACHE [None]
